FAERS Safety Report 19808575 (Version 4)
Quarter: 2022Q1

REPORT INFORMATION
  Report Type: Report from Study
  Country: US (occurrence: US)
  Receive Date: 20210909
  Receipt Date: 20220310
  Transmission Date: 20220423
  Serious: Yes (Hospitalization, Other)
  Sender: FDA-Public Use
  Company Number: NVSC2021US202610

PATIENT
  Age: 14 Year
  Sex: Female
  Weight: 45.1 kg

DRUGS (9)
  1. TOBI PODHALER [Suspect]
     Active Substance: TOBRAMYCIN
     Indication: Pseudomonas infection
     Dosage: 112 MG, BID
     Route: 065
     Dates: start: 20180118, end: 202009
  2. TOBI PODHALER [Suspect]
     Active Substance: TOBRAMYCIN
     Dosage: 112 MG, BID
     Route: 065
     Dates: start: 20210802
  3. TOBI PODHALER [Suspect]
     Active Substance: TOBRAMYCIN
     Dosage: 112 MG, BID
     Route: 065
     Dates: start: 2020, end: 20210205
  4. TOBI PODHALER [Suspect]
     Active Substance: TOBRAMYCIN
     Dosage: 112 MG, BID
     Dates: start: 2021, end: 20211011
  5. AZITHROMYCIN ANHYDROUS [Suspect]
     Active Substance: AZITHROMYCIN ANHYDROUS
     Indication: Antiinflammatory therapy
     Dosage: 500 MG, 3XW
     Route: 048
     Dates: start: 201601
  6. AZITHROMYCIN ANHYDROUS [Suspect]
     Active Substance: AZITHROMYCIN ANHYDROUS
     Dosage: UNK
     Route: 065
     Dates: start: 20211110, end: 20211124
  7. CAYSTON [Suspect]
     Active Substance: AZTREONAM
     Indication: Pseudomonas infection
     Dosage: 75 MILLIGRAM, TID
     Route: 065
     Dates: start: 20160101
  8. CAYSTON [Suspect]
     Active Substance: AZTREONAM
     Dosage: 75 MILLIGRAM, TID
     Route: 065
     Dates: start: 20210701
  9. COLISTIN [Concomitant]
     Active Substance: COLISTIN
     Indication: Pseudomonas infection
     Dosage: 150 MILLIGRAM, BID START DATE  11-OCT-2021
     Route: 065
     Dates: start: 20211011, end: 2021

REACTIONS (2)
  - Infective pulmonary exacerbation of cystic fibrosis [Not Recovered/Not Resolved]
  - COVID-19 [Recovered/Resolved]

NARRATIVE: CASE EVENT DATE: 20190305
